FAERS Safety Report 23733324 (Version 1)
Quarter: 2024Q2

REPORT INFORMATION
  Report Type: Spontaneous
  Country: FI (occurrence: FI)
  Receive Date: 20240411
  Receipt Date: 20240411
  Transmission Date: 20240716
  Serious: Yes (Disabling, Other)
  Sender: FDA-Public Use
  Company Number: None

PATIENT
  Age: 19 Year
  Sex: Male

DRUGS (2)
  1. CLOZAPINE [Suspect]
     Active Substance: CLOZAPINE
     Indication: Schizophrenia
     Dosage: AT ITS HIGHEST 375. OVER THE YEARS THE DOSAGE WAS REDUCED AND THEN I FINALLY GOT RID OF IT
     Route: 048
     Dates: start: 201411, end: 20220310
  2. ZUCLOPENTHIXOL [Concomitant]
     Active Substance: ZUCLOPENTHIXOL
     Dosage: CAN^T REMEMBER EXACT DOSAGE, FIRST INJECTIONS THEN TABLET DOSE
     Route: 048
     Dates: start: 2014, end: 2015

REACTIONS (7)
  - Weight increased [Recovered/Resolved]
  - Erectile dysfunction [Recovered/Resolved]
  - Brain fog [Recovered/Resolved with Sequelae]
  - Hypertension [Recovered/Resolved]
  - Communication disorder [Recovered/Resolved with Sequelae]
  - Heart rate increased [Recovered/Resolved]
  - Apathy [Recovered/Resolved with Sequelae]

NARRATIVE: CASE EVENT DATE: 20141101
